FAERS Safety Report 15856591 (Version 3)
Quarter: 2019Q1

REPORT INFORMATION
  Report Type: Report from Study
  Country: None (occurrence: TR)
  Receive Date: 20190123
  Receipt Date: 20190125
  Transmission Date: 20190417
  Serious: Yes (Hospitalization)
  Sender: FDA-Public Use
  Company Number: TR-ABBVIE-19S-161-2632328-00

PATIENT
  Age: 76 Year
  Sex: Male
  Weight: 58 kg

DRUGS (4)
  1. DUODOPA [Suspect]
     Active Substance: CARBIDOPA\LEVODOPA
     Indication: PARKINSON^S DISEASE
     Dosage: MD(ML): 6.00 CD(ML): 1.70 ED(ML): 0.50
     Route: 050
     Dates: start: 20190116, end: 20190117
  2. PK-MERZ [Concomitant]
     Active Substance: AMANTADINE
     Indication: PARKINSON^S DISEASE
     Dosage: 2X2
     Route: 048
  3. DUODOPA [Suspect]
     Active Substance: CARBIDOPA\LEVODOPA
     Dosage: MD (ML): 6.00 CD (ML): 1.70 ED (ML): 0.50
     Route: 050
     Dates: start: 20190122
  4. DEVIT-3 [Concomitant]
     Indication: VITAMIN SUPPLEMENTATION
     Route: 048
     Dates: start: 20190116

REACTIONS (3)
  - Gastric perforation [Recovered/Resolved]
  - Acute abdomen [Recovered/Resolved]
  - Stoma site pain [Recovered/Resolved]

NARRATIVE: CASE EVENT DATE: 20190117
